FAERS Safety Report 6265545-0 (Version None)
Quarter: 2009Q3

REPORT INFORMATION
  Report Type: 
  Country: None (occurrence: None)
  Receive Date: 20090713
  Receipt Date: 20090629
  Transmission Date: 20100115
  Serious: Yes (Other)
  Sender: FDA-Public Use
  Company Number: US-BAYER-200911957BCC

PATIENT
  Age: 67 Year
  Sex: Female

DRUGS (3)
  1. ASPIRIN [Suspect]
     Indication: DRUG USE FOR UNKNOWN INDICATION
     Route: 065
     Dates: end: 20090612
  2. PLAVIX [Suspect]
     Indication: STENT PLACEMENT
     Route: 048
     Dates: start: 20090605, end: 20090612
  3. IODINE DYE [Concomitant]
     Indication: DRUG USE FOR UNKNOWN INDICATION
     Dosage: CONSUMER WAS GIVEN IODINE DYE DURING STENT PLACEMENT
     Route: 065
     Dates: start: 20090605

REACTIONS (2)
  - PRURITUS [None]
  - RASH [None]
